FAERS Safety Report 7362415-1 (Version None)
Quarter: 2011Q1

REPORT INFORMATION
  Report Type: 
  Country: None (occurrence: None)
  Receive Date: 20110318
  Receipt Date: 20110309
  Transmission Date: 20110831
  Serious: Yes (Hospitalization, Other)
  Sender: FDA-Public Use
  Company Number: US-ASTRAZENECA-2011SE13383

PATIENT
  Age: 68 Year
  Sex: Male

DRUGS (6)
  1. CALCIUM ANTAGONIST [Concomitant]
     Dosage: AGAIN THERAPY STARTED ON 20-JAN-2011
     Dates: start: 20101008
  2. SAXAGLIPTIN CODE NOT BROKEN [Suspect]
     Indication: TYPE 2 DIABETES MELLITUS
     Dosage: DAILY
     Route: 048
     Dates: start: 20101009
  3. EZETIMIBE [Concomitant]
     Dosage: AGAIN THERAPY STARTED ON 20-JAN-2011
     Dates: start: 20101008
  4. CRESTOR [Suspect]
     Route: 048
  5. ANGIOTENSIN [Concomitant]
     Dosage: ANGIOTENSIN RECEPTOR BLOCKER AGAIN THERAPY STARTED ON 20-JAN-2011
     Dates: start: 20101008
  6. ASPIRIN [Concomitant]
     Dosage: AGAIN THERAPY STARTED ON 20-JAN2011
     Dates: start: 20101008

REACTIONS (2)
  - BILIARY POLYP [None]
  - PANCREATITIS [None]
